FAERS Safety Report 5764529-6 (Version None)
Quarter: 2008Q2

REPORT INFORMATION
  Report Type: 
  Country: None (occurrence: None)
  Receive Date: 20080605
  Receipt Date: 20080521
  Transmission Date: 20081010
  Serious: Yes (Hospitalization)
  Sender: FDA-Public Use
  Company Number: 231927J08USA

PATIENT
  Age: 67 Year
  Sex: Female
  Weight: 82.5547 kg

DRUGS (8)
  1. REBIF [Suspect]
     Indication: MULTIPLE SCLEROSIS
     Dosage: 44 MCG, 3 IN 1 WEEKS, SUBCUTANEOUS
     Route: 058
     Dates: start: 20071009
  2. CYMBALTA [Concomitant]
  3. AVALIDE (KARVEA HCT) [Concomitant]
  4. LEVOTHYROXINE SODIUM [Concomitant]
  5. ZOCOR [Concomitant]
  6. PEPCID [Concomitant]
  7. NEURONTIN [Concomitant]
  8. CLONAZEPAM [Concomitant]

REACTIONS (6)
  - DEPRESSION [None]
  - INJECTION SITE IRRITATION [None]
  - INJECTION SITE PAIN [None]
  - MEDICAL DEVICE PAIN [None]
  - MUSCLE SPASMS [None]
  - NEURALGIA [None]
